FAERS Safety Report 7132356-3 (Version None)
Quarter: 2010Q4

REPORT INFORMATION
  Report Type: 
  Country: None (occurrence: None)
  Receive Date: 20101202
  Receipt Date: 20101129
  Transmission Date: 20110411
  Serious: Yes (Life-Threatening)
  Sender: FDA-Public Use
  Company Number: JP-PFIZER INC-JP-WYE-H15644610

PATIENT
  Age: 80 Year
  Sex: Male

DRUGS (3)
  1. ZOSYN [Suspect]
     Indication: PNEUMONIA
     Dosage: 4.5 MG, 2X/DAY
     Route: 041
     Dates: start: 20091226, end: 20100105
  2. MEROPENEM [Concomitant]
     Indication: PNEUMONIA
     Dosage: 1 G, 1X/DAY
     Route: 041
     Dates: start: 20091217, end: 20091221
  3. PAZUCROSS [Concomitant]
     Indication: PNEUMONIA
     Dosage: 1000 MG, 1X/DAY
     Route: 041
     Dates: start: 20091222, end: 20091225

REACTIONS (1)
  - PANCYTOPENIA [None]
